FAERS Safety Report 15067760 (Version 1)
Quarter: 2018Q2

REPORT INFORMATION
  Report Type: Spontaneous
  Country: US (occurrence: US)
  Receive Date: 20180606
  Receipt Date: 20180606
  Transmission Date: 20180711
  Serious: Yes (Life-Threatening)
  Sender: FDA-Public Use
  Company Number: None

PATIENT
  Age: 78 Year
  Sex: Female
  Weight: 45 kg

DRUGS (6)
  1. ACIDOPHILUS PROBIOTIC [Concomitant]
  2. SUCRALFATE. [Concomitant]
     Active Substance: SUCRALFATE
  3. DHEA [Concomitant]
     Active Substance: PRASTERONE
  4. ATORVASTATIN [Concomitant]
     Active Substance: ATORVASTATIN
  5. CALCIUM [Concomitant]
     Active Substance: CALCIUM
  6. PANTOPRAZOLE 40MG TABLETS [Suspect]
     Active Substance: PANTOPRAZOLE
     Indication: GASTROOESOPHAGEAL REFLUX DISEASE
     Dosage: ?          QUANTITY:1 TABLET(S);?
     Route: 048
     Dates: start: 20180516, end: 20180518

REACTIONS (1)
  - Haematochezia [None]

NARRATIVE: CASE EVENT DATE: 20180516
